FAERS Safety Report 9505600 (Version 1)
Quarter: 2013Q1

REPORT INFORMATION
  Report Type: Spontaneous
  Country: US (occurrence: None)
  Receive Date: 20130221
  Receipt Date: 20130221
  Transmission Date: 20140127
  Serious: Yes (Other)
  Sender: FDA-Public Use
  Company Number: 1202USA02364

PATIENT
  Sex: Male

DRUGS (3)
  1. PRINIVIL [Suspect]
     Route: 048
  2. INDOCIN [Suspect]
  3. ALLOPURINOL [Suspect]

REACTIONS (1)
  - Renal failure [None]
